FAERS Safety Report 11365213 (Version 1)
Quarter: 2015Q3

REPORT INFORMATION
  Report Type: Spontaneous
  Country: IL (occurrence: IL)
  Receive Date: 20150811
  Receipt Date: 20150811
  Transmission Date: 20151125
  Serious: Yes (Other)
  Sender: FDA-Public Use
  Company Number: IL-TEVA-584165ISR

PATIENT
  Age: 55 Year
  Sex: Male

DRUGS (1)
  1. AMOXICLAV TEVA 875MG [Suspect]
     Active Substance: AMOXICILLIN\CLAVULANIC ACID
     Indication: ENDODONTIC PROCEDURE
     Dates: start: 201507

REACTIONS (4)
  - Choking [Recovered/Resolved]
  - Muscle spasms [Recovered/Resolved]
  - Dysphagia [Recovered/Resolved]
  - Oropharyngeal pain [Not Recovered/Not Resolved]

NARRATIVE: CASE EVENT DATE: 20150802
